FAERS Safety Report 25031196 (Version 1)
Quarter: 2025Q1

REPORT INFORMATION
  Report Type: Spontaneous
  Country: US (occurrence: None)
  Receive Date: 20250228
  Receipt Date: 20250228
  Transmission Date: 20250409
  Serious: Yes (Hospitalization)
  Sender: FDA-CTU
  Company Number: None

PATIENT
  Age: 59 Year
  Sex: Female
  Weight: 128 kg

DRUGS (1)
  1. CEPHALEXIN [Suspect]
     Active Substance: CEPHALEXIN
     Indication: Dental operation
     Route: 048
     Dates: start: 20240506, end: 20240506

REACTIONS (2)
  - Renal tubular necrosis [None]
  - Haemolytic anaemia [None]

NARRATIVE: CASE EVENT DATE: 20240506
